FAERS Safety Report 20566775 (Version 1)
Quarter: 2022Q1

REPORT INFORMATION
  Report Type: Spontaneous
  Country: US (occurrence: None)
  Receive Date: 20220307
  Receipt Date: 20220307
  Transmission Date: 20220423
  Serious: Yes (unspecified)
  Sender: FDA-Public Use
  Company Number: None

PATIENT
  Age: 14 Year
  Sex: Male
  Weight: 44.5 kg

DRUGS (4)
  1. IDURSULFASE [Suspect]
     Active Substance: IDURSULFASE
     Indication: Mucopolysaccharidosis II
     Dosage: 24MG ONE TIME INFUSION?
     Route: 041
     Dates: start: 20220301, end: 20220301
  2. Diphenhydramine 25 mg IVP [Concomitant]
     Dates: start: 20220301, end: 20220301
  3. Hydrocortisone 100 mg IVP [Concomitant]
     Dates: start: 20220301, end: 20220301
  4. Methylprednisolone 100 mg IVP [Concomitant]
     Dates: start: 20220301, end: 20220301

REACTIONS (3)
  - Urticaria [None]
  - Erythema [None]
  - Infusion related reaction [None]

NARRATIVE: CASE EVENT DATE: 20220301
